FAERS Safety Report 8724048 (Version 3)
Quarter: 2012Q4

REPORT INFORMATION
  Report Type: Report from Study
  Country: NL (occurrence: NL)
  Receive Date: 20120815
  Receipt Date: 20121114
  Transmission Date: 20130627
  Serious: Yes (Death, Hospitalization)
  Sender: FDA-Public Use
  Company Number: NL-ASTELLAS-2012US006903

PATIENT
  Age: 61 Year
  Sex: Male
  Weight: 75 kg

DRUGS (18)
  1. ERLOTINIB TABLET [Suspect]
     Indication: NEOPLASM
     Dosage: 100 mg, UID/QD
     Route: 048
     Dates: end: 20120702
  2. ERLOTINIB TABLET [Suspect]
     Dosage: 100 mg, UID/QD
     Route: 048
     Dates: end: 20120702
  3. ERLOTINIB TABLET [Suspect]
     Dosage: 50 mg, UID/QD
     Route: 048
     Dates: end: 20120730
  4. GDC-0941 [Suspect]
     Indication: NEOPLASM
     Dosage: 340, UID/QD
     Route: 048
     Dates: end: 20120702
  5. GDC-0941 [Suspect]
     Dosage: 250,  UID/QD
     Route: 048
     Dates: end: 20120729
  6. GDC-0941 [Suspect]
     Dosage: 260, UID/QD
     Route: 048
     Dates: end: 20120730
  7. GDC-0941 [Suspect]
     Dosage: 260, UID/QD
     Route: 048
  8. RANITIDINE [Concomitant]
     Indication: GASTROOESOPHAGEAL REFLUX DISEASE
     Dosage: 300 mg, Unknown/D
     Route: 048
     Dates: start: 20120608
  9. DOMPERIDON                         /00498201/ [Concomitant]
     Indication: ABDOMINAL DISCOMFORT
     Dosage: 10 mg, UID/QD
     Route: 048
     Dates: start: 20120510
  10. DEXAMETHASONE [Concomitant]
     Indication: CHRONIC OBSTRUCTIVE PULMONARY DISEASE
     Dosage: 1 mg, Unknown/D
     Route: 048
  11. PARACETAMOL/CODEINE [Concomitant]
     Indication: PAIN
     Dosage: 500/200 mg, Unknown/D
     Route: 048
  12. PARACETAMOL/CODEINE [Concomitant]
     Indication: COUGH
  13. TEMAZEPAM [Concomitant]
     Indication: INSOMNIA
     Dosage: 20 mg, Unknown/D
     Route: 048
  14. MINOCYCLINE [Concomitant]
     Indication: ERYTHEMA MULTIFORME
     Dosage: 100 mg, Unknown/D
     Route: 048
     Dates: start: 20120618, end: 20120621
  15. MINOCYCLINE [Concomitant]
     Dosage: 200 mg, Unknown/D
     Route: 048
     Dates: start: 20120621, end: 20120710
  16. TOPICORTE [Concomitant]
     Indication: ERYTHEMA MULTIFORME
     Dosage: UNK
     Route: 061
     Dates: start: 20120625
  17. METRONIDAZOLE [Concomitant]
     Indication: RASH
     Dosage: 1 %, Unknown/D
     Route: 061
     Dates: start: 20120621, end: 20120625
  18. DOXYCYCLINE [Concomitant]
     Indication: PNEUMONIA
     Dosage: 100 mg, Unknown/D
     Route: 048
     Dates: start: 20120710

REACTIONS (4)
  - Arterial haemorrhage [Fatal]
  - Pulmonary haemorrhage [Recovered/Resolved]
  - Oesophageal fistula [Recovered/Resolved]
  - Pneumonia [Recovered/Resolved]
